FAERS Safety Report 7540991-3 (Version None)
Quarter: 2011Q2

REPORT INFORMATION
  Report Type: 
  Country: None (occurrence: None)
  Receive Date: 20110610
  Receipt Date: 20110607
  Transmission Date: 20111010
  Serious: Yes (Death, Other)
  Sender: FDA-Public Use
  Company Number: US-B.I. PHARMACEUTICALS,INC./RIDGEFIELD-2011-BP-00797BP

PATIENT
  Age: 63 Year
  Sex: Male

DRUGS (7)
  1. TEMAZEPAM [Concomitant]
     Indication: SLEEP DISORDER
  2. MIRAPEX [Suspect]
     Indication: PARKINSON'S DISEASE
     Dosage: 1.5 MG
     Route: 048
     Dates: start: 20101201
  3. ACTONEL [Concomitant]
     Indication: OSTEOPOROSIS
  4. MIRAPEX [Suspect]
  5. AGGRENOX [Concomitant]
     Indication: TRANSIENT ISCHAEMIC ATTACK
  6. NEXIUM [Concomitant]
     Indication: ULCER
  7. LITHIUM CARBONATE [Concomitant]
     Indication: MOOD ALTERED

REACTIONS (6)
  - HALLUCINATION, VISUAL [None]
  - SUICIDAL IDEATION [None]
  - DEATH [None]
  - HEADACHE [None]
  - INSOMNIA [None]
  - ORAL CANDIDIASIS [None]
